FAERS Safety Report 17297488 (Version 3)
Quarter: 2020Q1

REPORT INFORMATION
  Report Type: Report from Study
  Country: None (occurrence: US)
  Receive Date: 20200121
  Receipt Date: 20200204
  Transmission Date: 20200409
  Serious: Yes (Other)
  Sender: FDA-Public Use
  Company Number: US-ABBVIE-20K-163-3236682-00

PATIENT
  Age: 62 Year
  Sex: Male

DRUGS (1)
  1. VENCLEXTA [Suspect]
     Active Substance: VENETOCLAX
     Indication: ACUTE MYELOID LEUKAEMIA
     Route: 048
     Dates: start: 20200102

REACTIONS (6)
  - Fatigue [Unknown]
  - Platelet transfusion [Not Recovered/Not Resolved]
  - Transfusion [Not Recovered/Not Resolved]
  - Decreased activity [Recovering/Resolving]
  - Ulcer [Unknown]
  - Feeling abnormal [Unknown]

NARRATIVE: CASE EVENT DATE: 202001
